FAERS Safety Report 23956593 (Version 1)
Quarter: 2024Q2

REPORT INFORMATION
  Report Type: Spontaneous
  Country: PT (occurrence: PT)
  Receive Date: 20240610
  Receipt Date: 20240610
  Transmission Date: 20240715
  Serious: Yes (Hospitalization)
  Sender: FDA-Public Use
  Company Number: PT-MYLANLABS-2024M1052161

PATIENT
  Age: 30 Year
  Sex: Male

DRUGS (8)
  1. ROPIVACAINE [Suspect]
     Active Substance: ROPIVACAINE
     Indication: Procedural pain
     Dosage: 25 MILLILITER
     Route: 042
  2. DEXMEDETOMIDINE [Suspect]
     Active Substance: DEXMEDETOMIDINE
     Indication: Procedural pain
     Dosage: 1 MICROGRAM/KILOGRAM
     Route: 042
  3. ACETAMINOPHEN [Suspect]
     Active Substance: ACETAMINOPHEN
     Indication: Procedural pain
     Dosage: 1 GRAM
     Route: 042
  4. TRAMADOL [Suspect]
     Active Substance: TRAMADOL\TRAMADOL HYDROCHLORIDE
     Indication: Procedural pain
     Dosage: 100 MILLIGRAM
     Route: 042
  5. PARECOXIB [Suspect]
     Active Substance: PARECOXIB
     Indication: Procedural pain
     Dosage: 40 MILLIGRAM
     Route: 042
  6. KETAMINE [Suspect]
     Active Substance: KETAMINE
     Indication: Procedural pain
     Dosage: 20 MILLIGRAM
     Route: 042
  7. TRANEXAMIC ACID [Concomitant]
     Active Substance: TRANEXAMIC ACID
     Indication: Product used for unknown indication
     Dosage: 1 GRAM, RECEIVED AS A BOLUS
     Route: 065
  8. TRANEXAMIC ACID [Concomitant]
     Active Substance: TRANEXAMIC ACID
     Dosage: 1.5 MILLIGRAM/KILOGRAM, QH, INFUSION RECEIVED UNTIL THE END OF THE SURGERY
     Route: 065

REACTIONS (1)
  - Drug ineffective [Unknown]
